FAERS Safety Report 5751161-3 (Version None)
Quarter: 2008Q2

REPORT INFORMATION
  Report Type: 
  Country: None (occurrence: None)
  Receive Date: 20080528
  Receipt Date: 20080519
  Transmission Date: 20081010
  Serious: Yes (Disabling)
  Sender: FDA-Public Use
  Company Number: FR-PFIZER INC-2008030296

PATIENT
  Sex: Female
  Weight: 68 kg

DRUGS (4)
  1. TAHOR [Suspect]
     Indication: HYPERCHOLESTEROLAEMIA
     Route: 048
     Dates: start: 20071005, end: 20080107
  2. TAHOR [Suspect]
     Indication: HAEMORRHAGIC STROKE
     Route: 048
     Dates: start: 20080107, end: 20080305
  3. COAPROVEL [Concomitant]
     Indication: HYPERTENSION
  4. STRUCTUM [Concomitant]
     Indication: OSTEOARTHRITIS
     Dosage: FREQ:2 INTAKES PER DAY

REACTIONS (4)
  - ABASIA [None]
  - NODULE ON EXTREMITY [None]
  - PAIN [None]
  - TENDON DISORDER [None]
